FAERS Safety Report 9060507 (Version 2)
Quarter: 2013Q1

REPORT INFORMATION
  Report Type: Spontaneous
  Country: US (occurrence: US)
  Receive Date: 20130212
  Receipt Date: 20130320
  Transmission Date: 20140127
  Serious: Yes (Other)
  Sender: FDA-Public Use
  Company Number: US-FRI-1000021141

PATIENT
  Age: 80 Year
  Sex: Female

DRUGS (7)
  1. ARMOUR THYROID [Suspect]
     Indication: HYPOTHYROIDISM
     Dosage: 60 MG
     Route: 048
     Dates: start: 1971, end: 20110524
  2. ARMOUR THYROID [Suspect]
     Dosage: 45 MG
     Route: 048
     Dates: start: 20110525, end: 201105
  3. ARMOUR THYROID [Suspect]
     Dosage: 30 MG
     Route: 048
     Dates: start: 201105
  4. ARMOUR THYROID [Suspect]
     Indication: HYPOTHYROIDISM
     Dosage: 60 MG
     Route: 048
  5. TOPROL XL [Suspect]
     Indication: HYPERTENSION
     Dosage: 50 MG
     Route: 048
     Dates: end: 201302
  6. LISINOPRIL [Concomitant]
     Indication: HYPERTENSION
     Dosage: 40 MG
     Route: 048
  7. LISINOPRIL [Concomitant]
     Dosage: 20 MG

REACTIONS (13)
  - Blood pressure systolic increased [Recovering/Resolving]
  - Blood thyroid stimulating hormone increased [Recovered/Resolved]
  - Tri-iodothyronine increased [Recovered/Resolved]
  - Thyroxine increased [Recovered/Resolved]
  - Asthenia [Recovering/Resolving]
  - Feeling hot [Recovering/Resolving]
  - Feeling cold [Recovering/Resolving]
  - Abdominal pain [Recovering/Resolving]
  - Gait disturbance [Recovered/Resolved]
  - Hypoaesthesia [Recovered/Resolved]
  - Arthralgia [Recovering/Resolving]
  - Local swelling [Not Recovered/Not Resolved]
  - Tremor [Recovering/Resolving]
